FAERS Safety Report 14966042 (Version 1)
Quarter: 2018Q2

REPORT INFORMATION
  Report Type: Spontaneous
  Country: IT (occurrence: IT)
  Receive Date: 20180603
  Receipt Date: 20180603
  Transmission Date: 20180711
  Serious: Yes (Hospitalization, Other)
  Sender: FDA-Public Use
  Company Number: IT-GLENMARK PHARMACEUTICALS-2018GMK035809

PATIENT

DRUGS (1)
  1. DICLOFENAC SODIUM. [Suspect]
     Active Substance: DICLOFENAC SODIUM
     Indication: PAIN
     Dosage: UNK (INTRAMUSCULAR DICLOFENAC INJECTION INTO GREAT GLUTEUS)
     Route: 030

REACTIONS (4)
  - Staphylococcal sepsis [Recovered/Resolved]
  - Septic arthritis staphylococcal [Recovered/Resolved]
  - Septic necrosis [Recovered/Resolved]
  - Muscle abscess [Recovered/Resolved]

NARRATIVE: CASE EVENT DATE: 2016
